FAERS Safety Report 4704432-3 (Version None)
Quarter: 2005Q2

REPORT INFORMATION
  Report Type: 
  Country: None (occurrence: None)
  Receive Date: 20050628
  Receipt Date: 20050610
  Transmission Date: 20051028
  Serious: Yes (Hospitalization)
  Sender: FDA-Public Use
  Company Number: US_0504116088

PATIENT
  Age: 76 Year
  Sex: Female
  Weight: 40 kg

DRUGS (7)
  1. FORTEO [Suspect]
     Indication: OSTEOPOROSIS
     Dosage: 20 UG/1 DAY
     Dates: start: 20040401
  2. KETOPROFEN [Concomitant]
  3. OMEPRAZOLE [Concomitant]
  4. VITAMIN B NOS [Concomitant]
  5. ATENOLOL [Concomitant]
  6. CHLORTHALIDONE [Concomitant]
  7. SIMVASTATIN [Concomitant]

REACTIONS (3)
  - NEPHROLITHIASIS [None]
  - PARATHYROID TUMOUR [None]
  - URINE CALCIUM [None]
